FAERS Safety Report 4960811-0 (Version None)
Quarter: 2006Q1

REPORT INFORMATION
  Report Type: 
  Country: None (occurrence: None)
  Receive Date: 20060331
  Receipt Date: 20060331
  Transmission Date: 20060701
  Serious: Yes (Hospitalization)
  Sender: FDA-Public Use
  Company Number: None

PATIENT
  Age: 66 Year
  Sex: Female

DRUGS (1)
  1. PROPOFOL [Suspect]
     Indication: SEDATIVE THERAPY
     Dosage: INTRAVENOUS; 40.0
     Route: 042
     Dates: start: 20060211, end: 20060213

REACTIONS (2)
  - METABOLIC ACIDOSIS [None]
  - PCO2 DECREASED [None]
